FAERS Safety Report 22080151 (Version 1)
Quarter: 2023Q1

REPORT INFORMATION
  Report Type: Spontaneous
  Country: US (occurrence: US)
  Receive Date: 20230309
  Receipt Date: 20230309
  Transmission Date: 20230418
  Serious: No
  Sender: FDA-Public Use
  Company Number: US-JNJFOC-20230313517

PATIENT
  Sex: Female

DRUGS (3)
  1. PEPCID [Suspect]
     Active Substance: FAMOTIDINE
     Indication: Drug hypersensitivity
     Route: 065
  2. ALLEGRA [Concomitant]
     Active Substance: FEXOFENADINE HYDROCHLORIDE
     Indication: Drug hypersensitivity
     Route: 065
  3. HYDRALAZINE [Concomitant]
     Active Substance: HYDRALAZINE HYDROCHLORIDE
     Indication: Drug hypersensitivity
     Route: 065

REACTIONS (1)
  - Product use in unapproved indication [Unknown]
